FAERS Safety Report 17170153 (Version 2)
Quarter: 2019Q4

REPORT INFORMATION
  Report Type: Report from Study
  Country: GR (occurrence: GR)
  Receive Date: 20191218
  Receipt Date: 20191220
  Transmission Date: 20200122
  Serious: Yes (Death, Hospitalization, Other)
  Sender: FDA-Public Use
  Company Number: GR-PFIZER INC-2019542211

PATIENT
  Age: 65 Year
  Sex: Male
  Weight: 85 kg

DRUGS (16)
  1. GLUCOPHAGE [Concomitant]
     Active Substance: METFORMIN HYDROCHLORIDE
     Indication: DIABETES MELLITUS
     Dosage: 850 MG, 1X/DAY
     Route: 048
     Dates: start: 20111016, end: 20191210
  2. ONDA [Concomitant]
     Indication: PREMEDICATION
     Dosage: 16 MG, EVERY 3 WEEKS
     Route: 048
     Dates: start: 20190905, end: 20191210
  3. FENOBRAT [Concomitant]
     Indication: HYPERTRIGLYCERIDAEMIA
     Dosage: 160 MG, 1X/DAY
     Route: 048
     Dates: start: 20121106, end: 20191210
  4. APOTEL [Concomitant]
     Active Substance: ACETAMINOPHEN
     Indication: PREMEDICATION
     Dosage: 1 G, (ONCE EVERY 2 WEEKS)
     Route: 042
     Dates: start: 20191016, end: 20191210
  5. CARVEPEN [Concomitant]
     Active Substance: CARVEDILOL
     Indication: ARRHYTHMIA
     Dosage: 6.25 MG, 1X/DAY
     Route: 048
     Dates: start: 20111011, end: 20191210
  6. BINOCRIT [Concomitant]
     Active Substance: ERYTHROPOIETIN
     Indication: SUPPORTIVE CARE
     Dosage: 40000 IU (EVERY 5 DAYS)
     Route: 058
     Dates: start: 20190802, end: 20191210
  7. AERIUS [EBASTINE] [Concomitant]
     Active Substance: EBASTINE
     Indication: PREMEDICATION
     Dosage: 5 MG, (ONCE EVERY 2 WEEKS)
     Route: 042
     Dates: start: 20191016, end: 20191210
  8. PLAVIX [Concomitant]
     Active Substance: CLOPIDOGREL BISULFATE
     Indication: ANTICOAGULANT THERAPY
     Dosage: 75 MG, 1X/DAY
     Route: 048
     Dates: start: 20110125, end: 20191210
  9. CONCOR [Concomitant]
     Active Substance: BISOPROLOL FUMARATE
     Indication: HYPERTENSION
     Dosage: 5 MG, 1X/DAY
     Route: 048
     Dates: start: 20111011, end: 20191210
  10. ETOPOSIDE. [Suspect]
     Active Substance: ETOPOSIDE
     Indication: SMALL CELL LUNG CANCER
     Dosage: 188 MG, EVERY 3 WEEKS
     Route: 042
     Dates: start: 20190905, end: 20191128
  11. AVELUMAB [Suspect]
     Active Substance: AVELUMAB
     Indication: SMALL CELL LUNG CANCER
     Dosage: 850 MG, CYCLIC (ONCE EVERY 2 WEEKS)
     Route: 042
     Dates: start: 20191016
  12. CARBOPLATIN. [Suspect]
     Active Substance: CARBOPLATIN
     Indication: SMALL CELL LUNG CANCER
     Dosage: 385.1 (UNSPECIFIED UNITS), EVERY 3 WEEKS
     Route: 042
     Dates: start: 20190905
  13. ACTOS [Concomitant]
     Active Substance: PIOGLITAZONE HYDROCHLORIDE
     Indication: DIABETES MELLITUS
     Dosage: 15 MG, 1X/DAY
     Route: 048
     Dates: start: 20110426, end: 20191210
  14. AVELUMAB [Suspect]
     Active Substance: AVELUMAB
     Dosage: 850 MG, CYCLIC (ONCE EVERY 2 WEEKS)
     Route: 042
     Dates: end: 20191126
  15. CARBOPLATIN. [Suspect]
     Active Substance: CARBOPLATIN
     Dosage: 385.1 (UNSPECIFIED UNITS), EVERY 3 WEEKS
     Route: 042
     Dates: end: 20191126
  16. IVEMEND [Concomitant]
     Active Substance: FOSAPREPITANT DIMEGLUMINE
     Indication: PREMEDICATION
     Dosage: 150 MG, EVERY 3 WEEKS
     Route: 042
     Dates: start: 20190905, end: 20191210

REACTIONS (1)
  - Febrile neutropenia [Fatal]

NARRATIVE: CASE EVENT DATE: 20191207
